FAERS Safety Report 6220299-9 (Version None)
Quarter: 2009Q2

REPORT INFORMATION
  Report Type: 
  Country: None (occurrence: None)
  Receive Date: 20090604
  Receipt Date: 20090519
  Transmission Date: 20091009
  Serious: Yes (Hospitalization)
  Sender: FDA-Public Use
  Company Number: GAM-078-09-GB

PATIENT
  Age: 45 Year
  Sex: Male

DRUGS (2)
  1. OCTAGAM [Suspect]
     Indication: APLASIA PURE RED CELL
     Dosage: 80 G I.V.
     Route: 042
     Dates: start: 20090514, end: 20090516
  2. ISONIAZID (ISONIAZID) BATCH # UNKNOWN [Suspect]
     Indication: TUBERCULOSIS
     Dosage: 300 MG
     Dates: start: 20090101, end: 20090515

REACTIONS (1)
  - NEUROPATHY PERIPHERAL [None]
